FAERS Safety Report 4616399-7 (Version None)
Quarter: 2005Q1

REPORT INFORMATION
  Report Type: 
  Country: None (occurrence: None)
  Receive Date: 20050321
  Receipt Date: 20050317
  Transmission Date: 20050727
  Serious: Yes (Hospitalization, Other)
  Sender: FDA-Public Use
  Company Number: 17096

PATIENT
  Age: 64 Year
  Sex: Male
  Weight: 110.6777 kg

DRUGS (1)
  1. DAUNORUBICIN HCL [Suspect]
     Indication: ACUTE MYELOID LEUKAEMIA
     Dosage: 45/MG/M2 OTHER
     Dates: start: 20050209

REACTIONS (3)
  - DYSPHAGIA [None]
  - HYPOCALCAEMIA [None]
  - HYPOMAGNESAEMIA [None]
